FAERS Safety Report 6996494-8 (Version None)
Quarter: 2010Q3

REPORT INFORMATION
  Report Type: 
  Country: None (occurrence: None)
  Receive Date: 20100918
  Receipt Date: 20090314
  Transmission Date: 20110219
  Serious: No
  Sender: FDA-Public Use
  Company Number: US-WYE-H08630409

PATIENT
  Sex: Female

DRUGS (2)
  1. EFFEXOR XR [Suspect]
     Dates: end: 20090101
  2. EFFEXOR XR [Suspect]
     Route: 048
     Dates: start: 20090101

REACTIONS (5)
  - ABDOMINAL PAIN UPPER [None]
  - DISCOMFORT [None]
  - DRUG WITHDRAWAL SYNDROME [None]
  - FEELING JITTERY [None]
  - NAUSEA [None]
